FAERS Safety Report 6088696-2 (Version None)
Quarter: 2009Q1

REPORT INFORMATION
  Report Type: 
  Country: None (occurrence: None)
  Receive Date: 20090219
  Receipt Date: 20090204
  Transmission Date: 20090719
  Serious: Yes (Hospitalization)
  Sender: FDA-Public Use
  Company Number: 09-000227

PATIENT
  Age: 68 Year
  Sex: Female

DRUGS (15)
  1. DORYX [Suspect]
     Indication: EAR PAIN
     Dosage: 100 MG
     Dates: start: 20081027, end: 20081027
  2. ADCAL-D3 (CALCIUM CARBONATE, COLECAL CIFEROL) [Concomitant]
  3. BETAHISTINE (BETAHISTINE) [Concomitant]
  4. BISOPROLOL (BISOPROLOL) [Concomitant]
  5. FOLIC ACID [Concomitant]
  6. FUROSEMIDE [Concomitant]
  7. GLICLAZIDE (GLICLAZIDE) [Concomitant]
  8. LANSOPRAZOLE [Concomitant]
  9. LOSARTAN POTASSIUM [Concomitant]
  10. MEBEVERINE HYDROCHLORIDE (MEBEVERINE HYDROCHLORIDE) [Concomitant]
  11. METFORMIN HCL [Concomitant]
  12. METHOTREXATE [Concomitant]
  13. PREDNISOLONE [Concomitant]
  14. STEMETIL /00013301/ (PROCHLORPERAZINE) [Concomitant]
  15. TRAMADOL HCL [Concomitant]

REACTIONS (2)
  - ANGINA PECTORIS [None]
  - DYSPEPSIA [None]
